FAERS Safety Report 6690054-4 (Version None)
Quarter: 2010Q2

REPORT INFORMATION
  Report Type: 
  Country: None (occurrence: None)
  Receive Date: 20100421
  Receipt Date: 20100413
  Transmission Date: 20101027
  Serious: Yes (Hospitalization, Other)
  Sender: FDA-Public Use
  Company Number: PHHY2010US23181

PATIENT
  Sex: Male
  Weight: 81.6 kg

DRUGS (5)
  1. RITALIN [Suspect]
     Dosage: UNK
     Route: 048
     Dates: start: 20100315, end: 20100315
  2. DILANTIN [Suspect]
     Dosage: UNK
     Route: 048
     Dates: start: 20100315
  3. ADDERALL 30 [Suspect]
     Dosage: UNK
     Route: 048
     Dates: start: 20100315
  4. FENTANYL [Suspect]
     Dosage: 75 MCG PATCH
     Route: 042
     Dates: start: 20100315
  5. FENTANYL [Suspect]
     Dosage: 25 MCG PATCH
     Route: 042
     Dates: start: 20100315

REACTIONS (7)
  - CONVULSION [None]
  - DRUG TOXICITY [None]
  - INTENTIONAL OVERDOSE [None]
  - LOSS OF CONSCIOUSNESS [None]
  - RESPIRATORY DEPRESSION [None]
  - SUICIDE ATTEMPT [None]
  - UNRESPONSIVE TO STIMULI [None]
